FAERS Safety Report 4506299-5 (Version None)
Quarter: 2004Q4

REPORT INFORMATION
  Report Type: 
  Country: None (occurrence: None)
  Receive Date: 20041025
  Receipt Date: 20031108
  Transmission Date: 20050328
  Serious: Yes (Other)
  Sender: FDA-Public Use
  Company Number: US-JNJFOC-20031102057

PATIENT
  Age: 14 Year
  Sex: Male
  Weight: 43.5453 kg

DRUGS (1)
  1. REMICADE [Suspect]
     Indication: CROHN'S DISEASE
     Dosage: INTRAVENOUS
     Route: 042

REACTIONS (4)
  - ALOPECIA [None]
  - CHRONIC SINUSITIS [None]
  - RASH [None]
  - SKIN LESION [None]
